FAERS Safety Report 4322485-1 (Version None)
Quarter: 2004Q1

REPORT INFORMATION
  Report Type: 
  Country: None (occurrence: None)
  Receive Date: 20040319
  Receipt Date: 20040308
  Transmission Date: 20041129
  Serious: Yes (Hospitalization)
  Sender: FDA-Public Use
  Company Number: UK068664

PATIENT
  Age: 56 Year
  Sex: Female

DRUGS (4)
  1. NEUPOGEN [Suspect]
     Indication: CHEMOTHERAPY
     Dates: start: 20040304
  2. DOXORUBICIN HYDROCHLORIDE [Concomitant]
  3. CYCLOPHOSPHAMIDE [Concomitant]
  4. PACLITAXEL [Concomitant]

REACTIONS (4)
  - CHEST PAIN [None]
  - GASTROENTERITIS [None]
  - MYALGIA [None]
  - PAIN [None]
